FAERS Safety Report 4472656-9 (Version None)
Quarter: 2004Q4

REPORT INFORMATION
  Report Type: 
  Country: None (occurrence: None)
  Receive Date: 20041013
  Receipt Date: 20041006
  Transmission Date: 20050328
  Serious: Yes (Death)
  Sender: FDA-Public Use
  Company Number: JP-BRISTOL-MYERS SQUIBB COMPANY-12724563

PATIENT
  Age: 56 Year
  Sex: Female

DRUGS (1)
  1. TAXOL [Suspect]
     Indication: UTERINE CANCER
     Route: 042
     Dates: start: 20040929, end: 20040929

REACTIONS (1)
  - MYOCARDIAL INFARCTION [None]
